FAERS Safety Report 10076422 (Version 2)
Quarter: 2014Q2

REPORT INFORMATION
  Report Type: Spontaneous
  Country: ID (occurrence: ID)
  Receive Date: 20140414
  Receipt Date: 20140421
  Transmission Date: 20141212
  Serious: Yes (Other)
  Sender: FDA-Public Use
  Company Number: ID-KOWA-2014S1000418

PATIENT
  Age: 58 Year
  Sex: Male

DRUGS (2)
  1. LIVALO [Suspect]
     Indication: HYPERLIPIDAEMIA
     Route: 048
     Dates: start: 20140302, end: 20140302
  2. SIMVASTATIN [Concomitant]

REACTIONS (1)
  - Angioedema [Recovered/Resolved]
